FAERS Safety Report 19216616 (Version 1)
Quarter: 2021Q2

REPORT INFORMATION
  Report Type: Spontaneous
  Country: US (occurrence: US)
  Receive Date: 20210505
  Receipt Date: 20210505
  Transmission Date: 20210717
  Serious: No
  Sender: FDA-Public Use
  Company Number: None

PATIENT
  Age: 61 Year
  Sex: Male
  Weight: 106.59 kg

DRUGS (1)
  1. PIOGLITAZONE (PIOGLITAZONE HCL 15MG TAB) [Suspect]
     Active Substance: PIOGLITAZONE
     Route: 048
     Dates: start: 20200402, end: 20200520

REACTIONS (2)
  - Dyspnoea [None]
  - Respiratory depression [None]

NARRATIVE: CASE EVENT DATE: 20200520
